FAERS Safety Report 15156476 (Version 1)
Quarter: 2018Q3

REPORT INFORMATION
  Report Type: Spontaneous
  Country: US (occurrence: US)
  Receive Date: 20180717
  Receipt Date: 20180717
  Transmission Date: 20181010
  Serious: No
  Sender: FDA-Public Use
  Company Number: US-BAUSCH-BL-2017-029685

PATIENT
  Sex: Female
  Weight: 115.77 kg

DRUGS (2)
  1. LACTULOSE. [Concomitant]
     Active Substance: LACTULOSE
     Indication: PRODUCT USED FOR UNKNOWN INDICATION
  2. XIFAXAN [Suspect]
     Active Substance: RIFAXIMIN
     Indication: HEPATIC ENCEPHALOPATHY
     Dosage: YEARS AGO
     Route: 048

REACTIONS (3)
  - Drug dose omission [Unknown]
  - Drug dispensing error [Unknown]
  - Memory impairment [Recovered/Resolved]
